FAERS Safety Report 4412094-8 (Version None)
Quarter: 2004Q3

REPORT INFORMATION
  Report Type: 
  Country: None (occurrence: None)
  Receive Date: 20040730
  Receipt Date: 20030910
  Transmission Date: 20050211
  Serious: Yes (Hospitalization)
  Sender: FDA-Public Use
  Company Number: FR-GLAXOSMITHKLINE-B0309071A

PATIENT
  Age: 45 Year
  Sex: Female

DRUGS (4)
  1. NARAMIG [Suspect]
     Indication: MIGRAINE
     Dosage: 5MG MONTHLY
     Route: 048
     Dates: end: 20030816
  2. ADVIL [Suspect]
     Indication: ARTHRALGIA
     Dosage: 200MG TWICE PER DAY
     Route: 048
     Dates: start: 20030721, end: 20030816
  3. REVAXIS [Suspect]
     Indication: IMMUNISATION
     Route: 030
     Dates: start: 20030720, end: 20030720
  4. GESTODENE AND ETHINYL ESTRADIOL [Suspect]
     Indication: ORAL CONTRACEPTION
     Dosage: 1TAB PER DAY
     Route: 048
     Dates: end: 20030816

REACTIONS (15)
  - ALANINE AMINOTRANSFERASE INCREASED [None]
  - ASPARTATE AMINOTRANSFERASE INCREASED [None]
  - ASTHENIA [None]
  - BLOOD ALKALINE PHOSPHATASE INCREASED [None]
  - BLOOD BILIRUBIN INCREASED [None]
  - BLOOD LACTATE DEHYDROGENASE INCREASED [None]
  - CYTOMEGALOVIRUS TEST POSITIVE [None]
  - EPSTEIN-BARR VIRUS ANTIBODY POSITIVE [None]
  - GAMMA-GLUTAMYLTRANSFERASE INCREASED [None]
  - HEPATIC ENZYME INCREASED [None]
  - HEPATITIS E ANTIBODY POSITIVE [None]
  - HEPATOSPLENOMEGALY [None]
  - NAUSEA [None]
  - PYREXIA [None]
  - VARICELLA ZOSTER VIRUS SEROLOGY POSITIVE [None]
